FAERS Safety Report 6502941-8 (Version None)
Quarter: 2009Q4

REPORT INFORMATION
  Report Type: 
  Country: None (occurrence: None)
  Receive Date: 20091217
  Receipt Date: 20091204
  Transmission Date: 20100525
  Serious: Yes (Other)
  Sender: FDA-Public Use
  Company Number: PHHY2009BR53755

PATIENT
  Age: 62 Year
  Sex: Female
  Weight: 70 kg

DRUGS (11)
  1. GALVUS [Suspect]
     Indication: DIABETES MELLITUS
     Dosage: 50 MG, 1 TABLET DAILY
     Route: 065
  2. DIOVAN HCT [Suspect]
     Indication: HYPERTENSION
     Dosage: 80/12.5 MG, 1 TABLET DAILY
     Route: 065
  3. DIOVAN HCT [Suspect]
     Dosage: 160/25 MG, 1 TABLET IN THE MORNING
     Route: 065
     Dates: start: 20080101
  4. GLICLAZIDE [Concomitant]
     Indication: DIABETES MELLITUS
     Dosage: 40 MG, 2 TABLETS AT ONCE IN FASTING
     Route: 065
  5. BUFFERIN [Concomitant]
     Indication: ANTICOAGULANT THERAPY
     Dosage: 1 TABLET DAILY
     Route: 065
  6. PABA TAB [Concomitant]
     Indication: VITILIGO
     Dosage: 100 MG, 1 TABLET AFTER BREAKFAST
     Route: 065
  7. THIOMUCASE [Concomitant]
     Dosage: 100 MG, 1 CAPSULE IN THE MORNING AND NIGHT
     Route: 065
  8. GREEN TEA [Concomitant]
     Dosage: 200 MG,
     Route: 065
  9. KAWA KAWA [Concomitant]
     Indication: ANXIOLYTIC THERAPY
     Dosage: 150 MG, 1 CAPSULE DAILY
     Route: 065
  10. MELILOT [Concomitant]
     Indication: CARDIOVASCULAR DISORDER
     Dosage: 1 TABLET DAILY
     Route: 065
     Dates: start: 20091101
  11. LIVIAL [Concomitant]
     Indication: HORMONE REPLACEMENT THERAPY
     Dosage: 2 MG, 1 TABLET DAILY
     Route: 048

REACTIONS (5)
  - CAROTID ARTERIOSCLEROSIS [None]
  - DYSKINESIA [None]
  - HYPOAESTHESIA [None]
  - TRANSIENT ISCHAEMIC ATTACK [None]
  - WEIGHT INCREASED [None]
